FAERS Safety Report 15074870 (Version 1)
Quarter: 2018Q2

REPORT INFORMATION
  Report Type: Spontaneous
  Country: US (occurrence: US)
  Receive Date: 20180627
  Receipt Date: 20180627
  Transmission Date: 20180711
  Serious: Yes (Other)
  Sender: FDA-Public Use
  Company Number: US-SAOL THERAPEUTICS-2017SAO01521

PATIENT

DRUGS (2)
  1. BACLOFEN. [Suspect]
     Active Substance: BACLOFEN
     Dosage: 220.1 ?G, \DAY
     Route: 037
  2. PRIALT [Suspect]
     Active Substance: ZICONOTIDE ACETATE
     Dosage: 1.1 ?G, \DAY

REACTIONS (5)
  - Device dislocation [Recovered/Resolved]
  - Pain [Recovering/Resolving]
  - Muscle spasms [Unknown]
  - Muscle spasticity [Recovering/Resolving]
  - Device kink [Recovered/Resolved]

NARRATIVE: CASE EVENT DATE: 2017
